FAERS Safety Report 25120127 (Version 1)
Quarter: 2025Q1

REPORT INFORMATION
  Report Type: Spontaneous
  Country: FR (occurrence: FR)
  Receive Date: 20250325
  Receipt Date: 20250325
  Transmission Date: 20250409
  Serious: Yes (Other)
  Sender: MYLAN
  Company Number: None

PATIENT
  Age: 43 Year
  Sex: Female
  Weight: 89 kg

DRUGS (1)
  1. LYRICA [Suspect]
     Active Substance: PREGABALIN
     Indication: Product used for unknown indication
     Dosage: UNK UNK, QD (100-0-250 MILLIGRAM EVENING )

REACTIONS (2)
  - Drug use disorder [Recovering/Resolving]
  - Intentional product misuse [Recovering/Resolving]
